FAERS Safety Report 21780263 (Version 2)
Quarter: 2023Q1

REPORT INFORMATION
  Report Type: Spontaneous
  Country: NO (occurrence: NO)
  Receive Date: 20221227
  Receipt Date: 20230213
  Transmission Date: 20230417
  Serious: Yes (Life-Threatening, Hospitalization)
  Sender: FDA-Public Use
  Company Number: None

PATIENT
  Age: 51 Year
  Sex: Female

DRUGS (5)
  1. GILENYA [Suspect]
     Active Substance: FINGOLIMOD HYDROCHLORIDE
     Indication: Multiple sclerosis
     Dosage: 0.5 MG, QD (L04AA27 - FINGOLIMOD)
     Route: 065
     Dates: start: 20140822
  2. GILENYA [Suspect]
     Active Substance: FINGOLIMOD HYDROCHLORIDE
     Dosage: 0.5 MG, QD (L04AA27 - FINGOLIMOD)
     Route: 065
     Dates: end: 2022
  3. FINGOLIMOD [Suspect]
     Active Substance: FINGOLIMOD
     Indication: Multiple sclerosis
     Dosage: GENERIC TO GILENYA FROM SPRING/SUMMER 2022. GENERIC NAME NOT STATED IN THE REPORT.
     Route: 065
     Dates: start: 2022, end: 20221020
  4. MIRABEGRON [Concomitant]
     Active Substance: MIRABEGRON
     Indication: Product used for unknown indication
     Dosage: 50 MG, QD, X1CONTINUED USE OF MEDICINAL PRODUCT
     Route: 065
     Dates: start: 20150603
  5. PANTOPRAZOLE [Concomitant]
     Active Substance: PANTOPRAZOLE
     Indication: Product used for unknown indication
     Dosage: 20 MG, BID, 1X1CONTINUED USE OF MEDICINAL PRODUCT
     Route: 065

REACTIONS (2)
  - Colon cancer [Unknown]
  - Metastases to liver [Unknown]

NARRATIVE: CASE EVENT DATE: 20221129
